FAERS Safety Report 5110167-8 (Version None)
Quarter: 2006Q3

REPORT INFORMATION
  Report Type: 
  Country: None (occurrence: None)
  Receive Date: 20060921
  Receipt Date: 20060914
  Transmission Date: 20061208
  Serious: Yes (Death, Other)
  Sender: FDA-Public Use
  Company Number: DK-AVENTIS-200614829EU

PATIENT
  Sex: Male

DRUGS (1)
  1. KLEXANE [Suspect]
     Indication: DRUG USE FOR UNKNOWN INDICATION

REACTIONS (3)
  - ABDOMINAL HAEMATOMA [None]
  - ILEUS [None]
  - WRONG TECHNIQUE IN DRUG USAGE PROCESS [None]
